FAERS Safety Report 5002440-9 (Version None)
Quarter: 2006Q2

REPORT INFORMATION
  Report Type: 
  Country: None (occurrence: None)
  Receive Date: 20060515
  Receipt Date: 20060314
  Transmission Date: 20061013
  Serious: Yes (Hospitalization)
  Sender: FDA-Public Use
  Company Number: CG-MERCK-0604USA02934

PATIENT
  Age: 49 Year
  Sex: Female
  Weight: 66 kg

DRUGS (1)
  1. STROMECTOL [Suspect]
     Route: 048
     Dates: start: 20060216, end: 20060216

REACTIONS (5)
  - ASTHENIA [None]
  - DIARRHOEA [None]
  - HEADACHE [None]
  - LOSS OF CONSCIOUSNESS [None]
  - SPEECH DISORDER [None]
